FAERS Safety Report 10418922 (Version 2)
Quarter: 2014Q3

REPORT INFORMATION
  Report Type: Spontaneous
  Country: US (occurrence: US)
  Receive Date: 20140829
  Receipt Date: 20140929
  Transmission Date: 20150326
  Serious: Yes (Hospitalization, Other)
  Sender: FDA-Public Use
  Company Number: US-GILEAD-2014-0113544

PATIENT
  Age: 70 Year
  Sex: Female

DRUGS (2)
  1. LETAIRIS [Suspect]
     Active Substance: AMBRISENTAN
     Indication: PRODUCT USED FOR UNKNOWN INDICATION
     Dosage: 10 MG, QD
     Route: 065
     Dates: start: 20130517
  2. XARELTO [Concomitant]
     Active Substance: RIVAROXABAN

REACTIONS (3)
  - Upper respiratory tract infection [Unknown]
  - Bronchitis [Unknown]
  - Pneumonia [Unknown]
